FAERS Safety Report 10223688 (Version 1)
Quarter: 2014Q2

REPORT INFORMATION
  Report Type: Spontaneous
  Country: JP (occurrence: JP)
  Receive Date: 20140609
  Receipt Date: 20140609
  Transmission Date: 20141212
  Serious: Yes (Other)
  Sender: FDA-Public Use
  Company Number: JP-MERCK-1406JPN000117

PATIENT
  Age: 73 Year
  Sex: Female
  Weight: 49 kg

DRUGS (10)
  1. PEGINTRON [Suspect]
     Indication: CHRONIC HEPATITIS C
     Dosage: 0.4 ML, QW
     Route: 058
     Dates: start: 20140120, end: 20140127
  2. PEGINTRON [Suspect]
     Dosage: 0.35 ML, QW
     Route: 058
     Dates: start: 20140203
  3. REBETOL [Suspect]
     Indication: CHRONIC HEPATITIS C
     Dosage: 600 MG A DAY
     Route: 048
     Dates: start: 20140120, end: 20140209
  4. REBETOL [Suspect]
     Dosage: 400 MG A DAY
     Route: 048
     Dates: start: 20140210, end: 20140215
  5. REBETOL [Suspect]
     Dosage: 200 TO 400 MG A DAY
     Route: 048
     Dates: start: 20140216
  6. SIMEPREVIR [Suspect]
     Indication: CHRONIC HEPATITIS C
     Dosage: 100 MG, QD
     Route: 048
     Dates: start: 20140120, end: 20140413
  7. NORVASC [Concomitant]
     Indication: HYPERTENSION
     Dosage: 1.5 DF, QD
     Route: 048
     Dates: start: 20080529
  8. ECARD HD [Concomitant]
     Indication: HYPERTENSION
     Dosage: 1 DF, QD
     Route: 048
     Dates: start: 20100327
  9. TATSUZOSIN [Concomitant]
     Indication: HYPERTENSION
     Dosage: 1 DF, QD
     Route: 048
     Dates: start: 20100108
  10. PLATIBIT [Concomitant]
     Indication: OSTEOPOROSIS
     Dosage: 1 DF, QD
     Route: 048
     Dates: start: 20080521

REACTIONS (26)
  - Weight decreased [Recovered/Resolved]
  - Loss of consciousness [Recovered/Resolved]
  - Loss of consciousness [Recovered/Resolved]
  - Malaise [Unknown]
  - Dyspnoea [Recovered/Resolved]
  - Hallucination, auditory [Recovered/Resolved]
  - Urinary incontinence [Recovered/Resolved]
  - Feeling abnormal [Unknown]
  - Headache [Unknown]
  - Headache [Unknown]
  - Decreased appetite [Recovered/Resolved]
  - Fatigue [Unknown]
  - Nausea [Unknown]
  - Oropharyngeal pain [Unknown]
  - Nasal congestion [Unknown]
  - Tooth extraction [Unknown]
  - Feeling hot [Unknown]
  - Platelet count decreased [Unknown]
  - Blood glucose increased [Unknown]
  - Feeling cold [Unknown]
  - Dizziness [Unknown]
  - Pyrexia [Unknown]
  - Headache [Unknown]
  - Headache [Unknown]
  - Nasal congestion [Unknown]
  - Decreased appetite [Unknown]
